FAERS Safety Report 4288699-4 (Version None)
Quarter: 2004Q1

REPORT INFORMATION
  Report Type: 
  Country: None (occurrence: None)
  Receive Date: 20040130
  Receipt Date: 20031120
  Transmission Date: 20041129
  Serious: Yes (Disabling, Other)
  Sender: FDA-Public Use
  Company Number: WAES 0311USA02306

PATIENT
  Age: 42 Year
  Sex: Female
  Weight: 88.905 kg

DRUGS (17)
  1. EMEND [Suspect]
     Indication: PROPHYLAXIS
     Dosage: 125 MG/1X/PO
     Route: 048
     Dates: start: 20031001, end: 20031001
  2. EMEND [Suspect]
     Indication: PROPHYLAXIS
     Dosage: 80 MG/DAILY/PO
     Route: 048
     Dates: start: 20031002, end: 20031003
  3. EMEND [Suspect]
     Indication: PROPHYLAXIS
     Dosage: 125 MG/IX/PO
     Route: 048
     Dates: start: 20031015, end: 20031015
  4. EMEND [Suspect]
     Indication: PROPHYLAXIS
     Dosage: 80 MG/DAILY/PO
     Route: 048
     Dates: start: 20031016, end: 20031017
  5. EMEND [Suspect]
     Indication: PROPHYLAXIS
     Dosage: 125 MG/IX/PO
     Route: 048
     Dates: start: 20031029, end: 20031029
  6. ADRIAMYCIN PFS [Concomitant]
  7. ANZEMET [Concomitant]
  8. CYTOXAN [Concomitant]
  9. DECADRON [Concomitant]
  10. PERCOCET [Concomitant]
  11. SYNTHROID [Concomitant]
  12. VICODIN [Concomitant]
  13. VIOXX [Concomitant]
  14. ZOFRAN [Concomitant]
  15. [THERAPY UNSPECIFIED] [Concomitant]
  16. IBUPROFEN [Concomitant]
  17. TAMOXIFEN CITRATE [Concomitant]

REACTIONS (1)
  - HEADACHE [None]
